FAERS Safety Report 7585838-4 (Version None)
Quarter: 2011Q2

REPORT INFORMATION
  Report Type: 
  Country: None (occurrence: None)
  Receive Date: 20110629
  Receipt Date: 20110629
  Transmission Date: 20111010
  Serious: Yes (Hospitalization, Other)
  Sender: FDA-Public Use
  Company Number: None

PATIENT
  Age: 67 Year
  Sex: Male
  Weight: 80.7403 kg

DRUGS (3)
  1. EVEROLIMUS 5MG MANUFACTURER: NOVARTIS PHARMACEUTICAL [Suspect]
     Indication: PANCREATIC CARCINOMA METASTATIC
     Dosage: 5 MG DAILY ORAL
     Route: 048
     Dates: start: 20110603, end: 20110624
  2. SORAFONIB 400MG BAYER PHARMACEUTICALS [Suspect]
     Indication: PANCREATIC CARCINOMA METASTATIC
     Dosage: 400 MG BID THEN DAILY
     Dates: start: 20110527, end: 20110624
  3. PLEASE SEE ATTACHED LIST [Concomitant]

REACTIONS (3)
  - WHITE BLOOD CELL COUNT INCREASED [None]
  - ENTEROVESICAL FISTULA [None]
  - URINARY TRACT INFECTION [None]
